FAERS Safety Report 12770515 (Version 1)
Quarter: 2016Q3

REPORT INFORMATION
  Report Type: Spontaneous
  Country: US (occurrence: US)
  Receive Date: 20160921
  Receipt Date: 20160921
  Transmission Date: 20161109
  Serious: Yes (Life-Threatening)
  Sender: FDA-Public Use
  Company Number: None

PATIENT
  Age: 54 Year
  Sex: Female
  Weight: 82.8 kg

DRUGS (6)
  1. ADDERALL [Concomitant]
     Active Substance: AMPHETAMINE ASPARTATE\AMPHETAMINE SULFATE\DEXTROAMPHETAMINE SACCHARATE\DEXTROAMPHETAMINE SULFATE
  2. NITROFURANTOIN MCR ALVOGEN [Suspect]
     Active Substance: NITROFURANTOIN
     Indication: URINARY TRACT INFECTION
     Route: 048
     Dates: start: 20160912, end: 20160917
  3. NAPROXEN SODIUM. [Concomitant]
     Active Substance: NAPROXEN SODIUM
  4. MVI [Concomitant]
     Active Substance: VITAMINS
  5. ESTRODIAL [Concomitant]
  6. VITAMIN D3 [Concomitant]
     Active Substance: CHOLECALCIFEROL

REACTIONS (5)
  - Hypersensitivity [None]
  - Electrocardiogram ST segment depression [None]
  - Chest pain [None]
  - Condition aggravated [None]
  - Ventricular extrasystoles [None]

NARRATIVE: CASE EVENT DATE: 20160917
